FAERS Safety Report 16300155 (Version 1)
Quarter: 2019Q2

REPORT INFORMATION
  Report Type: Spontaneous
  Country: DE (occurrence: DE)
  Receive Date: 20190510
  Receipt Date: 20190510
  Transmission Date: 20190711
  Serious: Yes (Hospitalization, Other)
  Sender: FDA-Public Use
  Company Number: DE-ASTRAZENECA-2019SE69604

PATIENT
  Age: 53 Year
  Sex: Female

DRUGS (1)
  1. BRILIQUE [Suspect]
     Active Substance: TICAGRELOR
     Indication: ANGINA PECTORIS
     Dosage: 90.0MG UNKNOWN
     Route: 048
     Dates: start: 201701

REACTIONS (4)
  - Acute myocardial infarction [Not Recovered/Not Resolved]
  - Product used for unknown indication [Unknown]
  - Vascular stent thrombosis [Unknown]
  - Off label use [Unknown]

NARRATIVE: CASE EVENT DATE: 20170202
